FAERS Safety Report 9652863 (Version 2)
Quarter: 2013Q4

REPORT INFORMATION
  Report Type: Spontaneous
  Country: CN (occurrence: CN)
  Receive Date: 20131029
  Receipt Date: 20131115
  Transmission Date: 20140711
  Serious: Yes (Death, Other)
  Sender: FDA-Public Use
  Company Number: CN-SA-2013SA107091

PATIENT
  Age: 80 Year
  Sex: Female
  Weight: 68 kg

DRUGS (1)
  1. THYMOGLOBULIN [Suspect]
     Indication: APLASTIC ANAEMIA
     Dosage: TOTAL DOSE 6250 MG/5DAYS
     Route: 065
     Dates: start: 20130719, end: 20130723

REACTIONS (11)
  - Respiratory failure [Fatal]
  - Oxygen saturation decreased [Fatal]
  - Circulatory collapse [Fatal]
  - Aplastic anaemia [Unknown]
  - Gastrointestinal haemorrhage [Unknown]
  - Malnutrition [Unknown]
  - Hepatic candidiasis [Unknown]
  - Lung infection [Unknown]
  - Pyrexia [Unknown]
  - Electrolyte imbalance [Unknown]
  - Hypoproteinaemia [Unknown]
